FAERS Safety Report 5258569-3 (Version None)
Quarter: 2007Q1

REPORT INFORMATION
  Report Type: 
  Country: None (occurrence: None)
  Receive Date: 20070305
  Receipt Date: 20070223
  Transmission Date: 20070707
  Serious: Yes (Death)
  Sender: FDA-Public Use
  Company Number: 228961

PATIENT
  Age: 73 Year
  Sex: Male

DRUGS (3)
  1. RITUXAN [Suspect]
     Indication: CHRONIC LYMPHOCYTIC LEUKAEMIA
  2. DIPHENHYDRAMINE (DIPHENHYDRAMINE NOS) [Concomitant]
  3. ACETAMINOPHEN [Concomitant]

REACTIONS (5)
  - DISEASE PROGRESSION [None]
  - DYSPNOEA [None]
  - HAEMOPTYSIS [None]
  - HYPOXIA [None]
  - TACHYCARDIA [None]
